FAERS Safety Report 7191728-1 (Version None)
Quarter: 2010Q4

REPORT INFORMATION
  Report Type: 
  Country: None (occurrence: None)
  Receive Date: 20101223
  Receipt Date: 20100819
  Transmission Date: 20110411
  Serious: No
  Sender: FDA-Public Use
  Company Number: US-AMGEN-KDL432418

PATIENT

DRUGS (11)
  1. ENBREL [Suspect]
     Indication: PRODUCT USED FOR UNKNOWN INDICATION
     Dosage: 50 MG, QWK
     Route: 058
  2. SERTRALINE HYDROCHLORIDE [Concomitant]
     Dosage: 25 MG, UNK
  3. MELOXICAM [Concomitant]
     Dosage: 7.5 MG, UNK
  4. CETIRIZINE HYDROCHLORIDE [Concomitant]
     Dosage: 10 MG, UNK
  5. TRAZODONE [Concomitant]
     Dosage: 50 MG, UNK
  6. PRAVASTATIN [Concomitant]
     Dosage: 10 MG, UNK
  7. PROMETHAZINE [Concomitant]
     Dosage: 12.5 MG, UNK
  8. OMEPRAZOLE [Concomitant]
     Dosage: 20 MG, UNK
  9. ALPRAZOLAM [Concomitant]
     Dosage: .25 MG, UNK
  10. OXYCODONE [Concomitant]
     Dosage: 5 MG, UNK
  11. TEMAZEPAM [Concomitant]
     Dosage: 7.5 MG, UNK

REACTIONS (3)
  - INJECTION SITE ERYTHEMA [None]
  - INJECTION SITE PRURITUS [None]
  - INJECTION SITE REACTION [None]
